FAERS Safety Report 5082485-3 (Version None)
Quarter: 2006Q3

REPORT INFORMATION
  Report Type: 
  Country: None (occurrence: None)
  Receive Date: 20060817
  Receipt Date: 20060807
  Transmission Date: 20061208
  Serious: Yes (Other)
  Sender: FDA-Public Use
  Company Number: PHHO2006NZ12789

PATIENT
  Sex: Male

DRUGS (4)
  1. CLOZARIL [Suspect]
     Indication: SCHIZOPHRENIA
     Dosage: 450MG
     Route: 048
     Dates: start: 20000910, end: 20060525
  2. QUINAPRIL [Concomitant]
  3. PANTOPRAZOLE SODIUM [Concomitant]
  4. ASPIRIN [Concomitant]

REACTIONS (4)
  - CARDIAC DISORDER [None]
  - CONVULSION [None]
  - SALIVARY HYPERSECRETION [None]
  - SEDATION [None]
